FAERS Safety Report 4445572-6 (Version None)
Quarter: 2004Q3

REPORT INFORMATION
  Report Type: 
  Country: None (occurrence: None)
  Receive Date: 20040902
  Receipt Date: 20040820
  Transmission Date: 20050211
  Serious: Yes (Other)
  Sender: FDA-Public Use
  Company Number: 2004058123

PATIENT
  Age: 78 Year
  Sex: Male

DRUGS (3)
  1. LIPITOR [Suspect]
     Indication: DYSLIPIDAEMIA
     Dosage: 10 MG (10 MG, 1 IN 1 D), ORAL
     Route: 048
     Dates: start: 19981101
  2. ASPIRIN [Concomitant]
  3. LEVOTHYROXINE SODIUM [Concomitant]

REACTIONS (1)
  - EYE OPERATION [None]
